FAERS Safety Report 9348273 (Version 1)
Quarter: 2013Q2

REPORT INFORMATION
  Report Type: Spontaneous
  Country: US (occurrence: None)
  Receive Date: 20130612
  Receipt Date: 20130612
  Transmission Date: 20140414
  Serious: No
  Sender: FDA-Public Use
  Company Number: None

PATIENT
  Age: 41 Year
  Sex: Female

DRUGS (2)
  1. SYNTHROID [Suspect]
     Dosage: 125 MGF 175 MG 200 MG
  2. CYTOMEL [Suspect]

REACTIONS (1)
  - No therapeutic response [None]
